FAERS Safety Report 18117178 (Version 1)
Quarter: 2020Q3

REPORT INFORMATION
  Report Type: Other
  Country: MX (occurrence: MX)
  Receive Date: 20200806
  Receipt Date: 20200806
  Transmission Date: 20201103
  Serious: Yes (Disabling, Other)
  Sender: FDA-Public Use
  Company Number: MX-ROCHE-2651198

PATIENT
  Age: 60 Year
  Sex: Female

DRUGS (7)
  1. ALLOPURINOL. [Concomitant]
     Active Substance: ALLOPURINOL
  2. RITUXIMAB. [Suspect]
     Active Substance: RITUXIMAB
     Indication: DIFFUSE LARGE B-CELL LYMPHOMA
     Dosage: DOSE NOT REPORTED
     Route: 041
     Dates: start: 2018
  3. DOXORUBICIN [Concomitant]
     Active Substance: DOXORUBICIN
     Indication: DIFFUSE LARGE B-CELL LYMPHOMA
     Route: 042
     Dates: start: 201809
  4. VINCRISTINE SULFATE. [Concomitant]
     Active Substance: VINCRISTINE SULFATE
     Indication: DIFFUSE LARGE B-CELL LYMPHOMA
     Route: 042
     Dates: start: 201809
  5. PREDNISONE. [Concomitant]
     Active Substance: PREDNISONE
     Indication: DIFFUSE LARGE B-CELL LYMPHOMA
     Route: 048
     Dates: start: 201809
  6. CIPROFLOXACIN. [Concomitant]
     Active Substance: CIPROFLOXACIN
     Indication: INFECTION PROPHYLAXIS
  7. CYCLOPHOSPHAMIDE. [Concomitant]
     Active Substance: CYCLOPHOSPHAMIDE
     Indication: DIFFUSE LARGE B-CELL LYMPHOMA
     Route: 042
     Dates: start: 201809

REACTIONS (7)
  - Fatigue [Unknown]
  - Somnolence [Unknown]
  - Immunodeficiency [Unknown]
  - Dyspnoea exertional [Unknown]
  - Gait disturbance [Unknown]
  - Neutropenia [Unknown]
  - Nausea [Unknown]
